FAERS Safety Report 7206784-1 (Version None)
Quarter: 2010Q4

REPORT INFORMATION
  Report Type: 
  Country: None (occurrence: None)
  Receive Date: 20101217
  Receipt Date: 20101123
  Transmission Date: 20110411
  Serious: Yes (Hospitalization)
  Sender: FDA-Public Use
  Company Number: 2009SP023487

PATIENT
  Age: 23 Year
  Sex: Female
  Weight: 74.8435 kg

DRUGS (6)
  1. NUVARING [Suspect]
     Indication: CONTRACEPTION
     Dosage: VAG
     Route: 067
     Dates: start: 20070801, end: 20081101
  2. COUMADIN [Suspect]
     Indication: ANTICOAGULANT THERAPY
     Dosage: 7.5 MG; QOD, 5 MG; QOD, 5 MG; QD, 5 MG; QOD; 7.5 MG; QOD
     Dates: start: 20081101, end: 20090526
  3. COUMADIN [Suspect]
     Indication: ANTICOAGULANT THERAPY
     Dosage: 7.5 MG; QOD, 5 MG; QOD, 5 MG; QD, 5 MG; QOD; 7.5 MG; QOD
     Dates: start: 20081101, end: 20090526
  4. COUMADIN [Suspect]
     Indication: ANTICOAGULANT THERAPY
     Dosage: 7.5 MG; QOD, 5 MG; QOD, 5 MG; QD, 5 MG; QOD; 7.5 MG; QOD
     Dates: start: 20090101, end: 20091123
  5. COUMADIN [Suspect]
     Indication: ANTICOAGULANT THERAPY
     Dosage: 7.5 MG; QOD, 5 MG; QOD, 5 MG; QD, 5 MG; QOD; 7.5 MG; QOD
     Dates: start: 20090101, end: 20091123
  6. COUMADIN [Suspect]
     Indication: ANTICOAGULANT THERAPY
     Dosage: 7.5 MG; QOD, 5 MG; QOD, 5 MG; QD, 5 MG; QOD; 7.5 MG; QOD
     Dates: start: 20090526

REACTIONS (7)
  - CHEST PAIN [None]
  - CONTUSION [None]
  - DEEP VEIN THROMBOSIS [None]
  - HYPERCOAGULATION [None]
  - PAIN IN EXTREMITY [None]
  - PULMONARY EMBOLISM [None]
  - THROMBOSIS [None]
